FAERS Safety Report 12247688 (Version 1)
Quarter: 2016Q2

REPORT INFORMATION
  Report Type: Spontaneous
  Country: US (occurrence: US)
  Receive Date: 20160408
  Receipt Date: 20160408
  Transmission Date: 20160815
  Serious: No
  Sender: FDA-Public Use
  Company Number: US-HOSPIRA-2810711

PATIENT
  Age: 60 Year
  Sex: Male
  Weight: 120 kg

DRUGS (3)
  1. PROPOFOL. [Suspect]
     Active Substance: PROPOFOL
     Indication: SEDATIVE THERAPY
     Dosage: ONCE
     Route: 042
     Dates: start: 20150221, end: 20150221
  2. VERSED [Concomitant]
     Active Substance: MIDAZOLAM HYDROCHLORIDE
     Indication: SEDATIVE THERAPY
     Dosage: ONCE
     Route: 042
     Dates: start: 20150221
  3. FENTANYL. [Concomitant]
     Active Substance: FENTANYL
     Indication: SEDATIVE THERAPY
     Dosage: ONCE
     Route: 042
     Dates: start: 20150221

REACTIONS (6)
  - Drug ineffective [Recovered/Resolved]
  - Product formulation issue [Recovered/Resolved]
  - Obstructive airways disorder [Recovered/Resolved]
  - Product substitution issue [None]
  - Product quality issue [Recovered/Resolved]
  - Cough [Recovered/Resolved]

NARRATIVE: CASE EVENT DATE: 20150221
